FAERS Safety Report 19989596 (Version 1)
Quarter: 2021Q4

REPORT INFORMATION
  Report Type: Spontaneous
  Country: GB (occurrence: GB)
  Receive Date: 20211025
  Receipt Date: 20211025
  Transmission Date: 20220303
  Serious: Yes (Other)
  Sender: FDA-Public Use
  Company Number: None

PATIENT
  Age: 35 Year
  Sex: Male
  Weight: 70 kg

DRUGS (2)
  1. DOXYCYCLINE HYDROCHLORIDE [Suspect]
     Active Substance: DOXYCYCLINE HYDROCHLORIDE
     Indication: Ill-defined disorder
     Dosage: 200 MILLIGRAM DAILY;
     Route: 048
     Dates: start: 20201009, end: 20201011
  2. OMEPRAZOLE [Concomitant]
     Active Substance: OMEPRAZOLE
     Indication: Ill-defined disorder

REACTIONS (4)
  - Abdominal pain upper [Unknown]
  - Oesophagitis [Unknown]
  - Duodenitis [Unknown]
  - Abdominal pain upper [Unknown]
